FAERS Safety Report 25059605 (Version 1)
Quarter: 2025Q1

REPORT INFORMATION
  Report Type: Spontaneous
  Country: FR (occurrence: FR)
  Receive Date: 20250310
  Receipt Date: 20250310
  Transmission Date: 20250409
  Serious: Yes (Life-Threatening, Disabling)
  Sender: MYLAN
  Company Number: None

PATIENT
  Age: 84 Year
  Sex: Female
  Weight: 64 kg

DRUGS (2)
  1. ZOLOFT [Suspect]
     Active Substance: SERTRALINE HYDROCHLORIDE
     Indication: Mixed anxiety and depressive disorder
     Dosage: 25 MILLIGRAM, QD
     Dates: start: 20250131
  2. LOVENOX [Suspect]
     Active Substance: ENOXAPARIN SODIUM
     Indication: Deep vein thrombosis
     Dosage: 6000 INTERNATIONAL UNIT, BID (12 HOURS)
     Dates: start: 20250206, end: 20250214

REACTIONS (6)
  - Spontaneous haematoma [Recovering/Resolving]
  - Blood loss anaemia [Recovering/Resolving]
  - Haemorrhage [Recovering/Resolving]
  - Product prescribing error [Recovering/Resolving]
  - Nerve compression [Not Recovered/Not Resolved]
  - Motor dysfunction [Not Recovered/Not Resolved]

NARRATIVE: CASE EVENT DATE: 20250206
